FAERS Safety Report 18190561 (Version 1)
Quarter: 2020Q3

REPORT INFORMATION
  Report Type: Spontaneous
  Country: IT (occurrence: IT)
  Receive Date: 20200825
  Receipt Date: 20200825
  Transmission Date: 20201103
  Serious: Yes (Hospitalization, Other)
  Sender: FDA-Public Use
  Company Number: IT-TEVA-2020-IT-1817988

PATIENT
  Age: 37 Year
  Sex: Female

DRUGS (2)
  1. PREDNISONE. [Suspect]
     Active Substance: PREDNISONE
     Indication: ANTITHYROID ARTHRITIS SYNDROME
     Dosage: 75 MILLIGRAM DAILY;
     Route: 048
  2. METHIMAZOLE. [Suspect]
     Active Substance: METHIMAZOLE
     Indication: BASEDOW^S DISEASE
     Dosage: 30 MILLIGRAM DAILY;
     Route: 048

REACTIONS (3)
  - Wheelchair user [Recovered/Resolved]
  - Drug ineffective [Unknown]
  - Antithyroid arthritis syndrome [Recovered/Resolved]
